FAERS Safety Report 6595035-7 (Version None)
Quarter: 2010Q1

REPORT INFORMATION
  Report Type: 
  Country: None (occurrence: None)
  Receive Date: 20100222
  Receipt Date: 20091119
  Transmission Date: 20100710
  Serious: Yes (Other)
  Sender: FDA-Public Use
  Company Number: GB-GENENTECH-298382

PATIENT
  Age: 71 Year
  Sex: Female

DRUGS (1)
  1. LUCENTIS [Suspect]
     Indication: RETINAL HAEMORRHAGE
     Dosage: 0.5 MG, 1/MONTH
     Route: 031

REACTIONS (3)
  - RETINAL OEDEMA [None]
  - SUBRETINAL FIBROSIS [None]
  - VISUAL ACUITY REDUCED [None]
